FAERS Safety Report 5855865-3 (Version None)
Quarter: 2008Q3

REPORT INFORMATION
  Report Type: 
  Country: None (occurrence: None)
  Receive Date: 20080825
  Receipt Date: 20080612
  Transmission Date: 20090109
  Serious: No
  Sender: FDA-Public Use
  Company Number: A0732665A

PATIENT
  Age: 15 Year
  Sex: Male

DRUGS (7)
  1. MALARONE [Suspect]
     Indication: MALARIA
     Dosage: 2TAB PER DAY
     Route: 048
     Dates: start: 20080601, end: 20080608
  2. FLONASE [Concomitant]
  3. ADVAIR DISKUS 100/50 [Concomitant]
  4. NEXIUM [Concomitant]
  5. BENADRYL [Concomitant]
  6. CORTIZONE CREAM [Concomitant]
  7. DOXYCYCLINE [Concomitant]

REACTIONS (4)
  - OEDEMA PERIPHERAL [None]
  - OVERDOSE [None]
  - RASH [None]
  - SUNBURN [None]
